FAERS Safety Report 6812519-4 (Version None)
Quarter: 2010Q3

REPORT INFORMATION
  Report Type: 
  Country: None (occurrence: None)
  Receive Date: 20100701
  Receipt Date: 20100623
  Transmission Date: 20110219
  Serious: Yes (Disabling)
  Sender: FDA-Public Use
  Company Number: GB-ABBOTT-10P-167-0651107-00

PATIENT
  Sex: Female
  Weight: 85 kg

DRUGS (2)
  1. HUMIRA [Suspect]
     Indication: PSORIASIS
     Route: 058
     Dates: start: 20100114, end: 20100210
  2. HUMIRA [Concomitant]
     Indication: PSORIASIS
     Route: 058
     Dates: start: 20090310

REACTIONS (1)
  - DEMYELINATION [None]
